FAERS Safety Report 9859777 (Version 1)
Quarter: 2014Q1

REPORT INFORMATION
  Report Type: Spontaneous
  Country: FR (occurrence: FR)
  Receive Date: 20140131
  Receipt Date: 20140131
  Transmission Date: 20141002
  Serious: Yes (Other)
  Sender: FDA-Public Use
  Company Number: FR-ASTRAZENECA-2014SE06134

PATIENT
  Age: 501 Month
  Sex: Male
  Weight: 98 kg

DRUGS (9)
  1. CRESTOR [Suspect]
     Indication: PROPHYLAXIS
     Route: 048
     Dates: start: 201106, end: 201309
  2. CRESTOR [Suspect]
     Indication: PROPHYLAXIS
     Route: 048
     Dates: start: 201309
  3. PRASUGREL [Concomitant]
     Indication: MYOCARDIAL INFARCTION
     Dates: start: 2011
  4. KARDEGIC [Concomitant]
     Indication: MYOCARDIAL INFARCTION
     Dates: start: 2011
  5. BISOPROLOL [Concomitant]
     Indication: MYOCARDIAL INFARCTION
     Dates: start: 2011
  6. SPIRONOLACTONE [Concomitant]
     Indication: MYOCARDIAL INFARCTION
     Dates: start: 2011
  7. OMACOR [Concomitant]
     Indication: MYOCARDIAL INFARCTION
     Dates: start: 2011
  8. VALSARTAN [Concomitant]
     Indication: MYOCARDIAL INFARCTION
     Dates: start: 2011
  9. METFORMINE [Concomitant]
     Indication: DIABETES MELLITUS
     Dates: start: 201207

REACTIONS (3)
  - Weight increased [Not Recovered/Not Resolved]
  - Type 2 diabetes mellitus [Not Recovered/Not Resolved]
  - Transaminases increased [Unknown]
